FAERS Safety Report 19712801 (Version 1)
Quarter: 2021Q3

REPORT INFORMATION
  Report Type: Spontaneous
  Country: NL (occurrence: NL)
  Receive Date: 20210817
  Receipt Date: 20210817
  Transmission Date: 20211014
  Serious: Yes (Hospitalization, Other)
  Sender: FDA-Public Use
  Company Number: NL-JAZZ-2021-NL-005125

PATIENT
  Age: 49 Year
  Sex: Female

DRUGS (8)
  1. ZEPZELCA [Suspect]
     Active Substance: LURBINECTEDIN
     Indication: SMALL CELL LUNG CANCER
     Dosage: 5.75 MILLIGRAM CYCLICAL (2 CYCLES)
     Dates: start: 20201231, end: 2021
  2. LACTULOSE. [Concomitant]
     Active Substance: LACTULOSE
  3. PARACETAMOL [Concomitant]
     Active Substance: ACETAMINOPHEN
  4. MOVICOLON [Concomitant]
     Active Substance: POLYETHYLENE GLYCOL 3350\POTASSIUM CHLORIDE\SODIUM BICARBONATE\SODIUM CHLORIDE
  5. OMEPRAZOLE. [Concomitant]
     Active Substance: OMEPRAZOLE
  6. VITAMIN D3 [Concomitant]
     Active Substance: CHOLECALCIFEROL
  7. DICLOFENAC [Concomitant]
     Active Substance: DICLOFENAC
  8. OXYCODON [Concomitant]
     Active Substance: OXYCODONE

REACTIONS (2)
  - Pneumonitis [Not Recovered/Not Resolved]
  - Constipation [Unknown]

NARRATIVE: CASE EVENT DATE: 20210205
